FAERS Safety Report 8418102-1 (Version None)
Quarter: 2012Q2

REPORT INFORMATION
  Report Type: 
  Country: None (occurrence: None)
  Receive Date: 20120531
  Receipt Date: 20120522
  Transmission Date: 20120825
  Serious: Yes (Hospitalization)
  Sender: FDA-Public Use
  Company Number: DAV-AE-MTX-12-44

PATIENT
  Age: 55 Year
  Sex: Female
  Weight: 105.5 kg

DRUGS (9)
  1. METHOTREXATE [Suspect]
     Indication: RHEUMATOID ARTHRITIS
     Dosage: (1 IN 1 WK), ORAL
     Route: 048
     Dates: start: 20120405, end: 20120426
  2. HUMIRA [Suspect]
     Indication: RHEUMATOID ARTHRITIS
     Dosage: (1 IN 2 WK), SC
     Route: 058
     Dates: start: 20120405, end: 20120419
  3. COMMERCIAL METHOTREXATE (METHOTREXATE SODIUM) [Concomitant]
  4. PREDNISONE TAB [Concomitant]
  5. CEFALEIXIN (CEFALEXIN) [Concomitant]
  6. FOLIC ACID [Concomitant]
  7. BACTRIM (SULFAMETHOXAZOLE, TIRMETHOPRIM) [Concomitant]
  8. MELOXICAM [Concomitant]
  9. NITROGLYCERIN [Concomitant]

REACTIONS (4)
  - DECREASED APPETITE [None]
  - PYREXIA [None]
  - DEHYDRATION [None]
  - PNEUMONIA LEGIONELLA [None]
